FAERS Safety Report 16525424 (Version 2)
Quarter: 2019Q3

REPORT INFORMATION
  Report Type: Spontaneous
  Country: GB (occurrence: GB)
  Receive Date: 20190703
  Receipt Date: 20190725
  Transmission Date: 20191004
  Serious: Yes (Other)
  Sender: FDA-Public Use
  Company Number: GB-MYLANLABS-2019M1062570

PATIENT
  Sex: Male
  Weight: 64 kg

DRUGS (3)
  1. CLOZARIL [Suspect]
     Active Substance: CLOZAPINE
     Indication: SCHIZOPHRENIA
     Dosage: UNK
     Route: 048
     Dates: start: 20140606
  2. FYBOGEL [Concomitant]
     Active Substance: PLANTAGO OVATA SEED
     Indication: CONSTIPATION
     Dosage: UNK, QD
     Route: 048
  3. AMISULPRIDE [Concomitant]
     Active Substance: AMISULPRIDE
     Indication: SCHIZOPHRENIA
     Dosage: 200 MILLIGRAM, QD
     Route: 048

REACTIONS (2)
  - Lung neoplasm malignant [Recovering/Resolving]
  - Weight decreased [Unknown]

NARRATIVE: CASE EVENT DATE: 201901
